FAERS Safety Report 24605828 (Version 1)
Quarter: 2024Q4

REPORT INFORMATION
  Report Type: Spontaneous
  Country: CN (occurrence: CN)
  Receive Date: 20241111
  Receipt Date: 20241111
  Transmission Date: 20250115
  Serious: Yes (Other)
  Sender: JOHNSON AND JOHNSON
  Company Number: CN-BAYER-2024A160553

PATIENT
  Age: 81 Year
  Sex: Male
  Weight: 85 kg

DRUGS (2)
  1. XARELTO [Suspect]
     Active Substance: RIVAROXABAN
     Indication: Acute respiratory failure
     Dosage: 1 DF, QD
     Route: 048
     Dates: start: 20241025, end: 20241030
  2. SOLU-MEDROL [Suspect]
     Active Substance: METHYLPREDNISOLONE SODIUM SUCCINATE
     Indication: Product used for unknown indication
     Route: 048

REACTIONS (4)
  - Peptic ulcer haemorrhage [Recovering/Resolving]
  - Prothrombin time abnormal [Unknown]
  - Product prescribing issue [Unknown]
  - Product use in unapproved indication [Unknown]

NARRATIVE: CASE EVENT DATE: 20241025
